FAERS Safety Report 5066526-5 (Version None)
Quarter: 2006Q3

REPORT INFORMATION
  Report Type: 
  Country: None (occurrence: None)
  Receive Date: 20060731
  Receipt Date: 20060731
  Transmission Date: 20061208
  Serious: Yes (Other)
  Sender: FDA-Public Use
  Company Number: None

PATIENT
  Age: 52 Year
  Sex: Male
  Weight: 108.8633 kg

DRUGS (2)
  1. FENTANYL TRANSDERMAL SYSTEM [Suspect]
     Indication: POST PROCEDURAL COMPLICATION
     Dosage: 4 PATCHES EVERY THEE DAYS TRANSDERMAL
     Route: 062
     Dates: start: 20060706, end: 20060728
  2. FENTANYL TRANSDERMAL SYSTEM [Suspect]
     Indication: SPINAL DISORDER
     Dosage: 4 PATCHES EVERY THEE DAYS TRANSDERMAL
     Route: 062
     Dates: start: 20060706, end: 20060728

REACTIONS (4)
  - DRUG ADMINISTRATION ERROR [None]
  - DRUG WITHDRAWAL SYNDROME [None]
  - PAIN [None]
  - PHARMACEUTICAL PRODUCT COMPLAINT [None]
